FAERS Safety Report 16759526 (Version 1)
Quarter: 2019Q3

REPORT INFORMATION
  Report Type: Spontaneous
  Country: US (occurrence: US)
  Receive Date: 20190711
  Receipt Date: 20190711
  Transmission Date: 20191005
  Serious: Yes (Other)
  Sender: FDA-Public Use
  Company Number: None

PATIENT
  Age: 66 Year
  Sex: Female

DRUGS (11)
  1. BUPROPION. [Concomitant]
     Active Substance: BUPROPION
  2. PANTOPRAZOLE [Concomitant]
     Active Substance: PANTOPRAZOLE
  3. AMBRISENTAN [Suspect]
     Active Substance: AMBRISENTAN
     Indication: PULMONARY ARTERIAL HYPERTENSION
     Route: 048
     Dates: start: 201210
  4. METOPROLOL. [Concomitant]
     Active Substance: METOPROLOL
  5. WARFARIN [Concomitant]
     Active Substance: WARFARIN
  6. DICLOFENAC [Concomitant]
     Active Substance: DICLOFENAC
  7. CALCIUM CARBONATE. [Concomitant]
     Active Substance: CALCIUM CARBONATE
  8. LASIX [Concomitant]
     Active Substance: FUROSEMIDE
  9. TYLENOL WITH CODEINE [Concomitant]
     Active Substance: ACETAMINOPHEN\CODEINE PHOSPHATE
  10. LEVOTHYROXINE. [Concomitant]
     Active Substance: LEVOTHYROXINE
  11. VITAMIN D3 [Concomitant]
     Active Substance: CHOLECALCIFEROL

REACTIONS (3)
  - Vomiting [None]
  - Nausea [None]
  - Bronchitis [None]

NARRATIVE: CASE EVENT DATE: 20190626
